FAERS Safety Report 4430629-6 (Version None)
Quarter: 2004Q3

REPORT INFORMATION
  Report Type: 
  Country: None (occurrence: None)
  Receive Date: 20040818
  Receipt Date: 20040803
  Transmission Date: 20050211
  Serious: No
  Sender: FDA-Public Use
  Company Number: 04P-056-0268299-00

PATIENT
  Age: 79 Year
  Sex: Female
  Weight: 80 kg

DRUGS (4)
  1. TRICOR [Suspect]
     Dosage: 160 MG, 1 IN 1 D, PER ORAL
     Route: 048
     Dates: start: 20020801, end: 20040430
  2. ALDACTAZINE [Suspect]
     Dates: start: 19860101, end: 20040430
  3. FLUINDIONE [Concomitant]
  4. LEVOTHYROXINE SODIUM [Concomitant]

REACTIONS (1)
  - RENAL FAILURE [None]
